FAERS Safety Report 21083764 (Version 1)
Quarter: 2022Q3

REPORT INFORMATION
  Report Type: Spontaneous
  Country: US (occurrence: None)
  Receive Date: 20220714
  Receipt Date: 20220714
  Transmission Date: 20221027
  Serious: Yes (Other)
  Sender: FDA-Public Use
  Company Number: None

PATIENT
  Age: 64 Year
  Sex: Female
  Weight: 54.43 kg

DRUGS (1)
  1. ZOLEDRONIC ACID [Suspect]
     Active Substance: ZOLEDRONIC ACID
     Indication: Osteoporosis
     Dosage: OTHER FREQUENCY : ONCE PER YEAR ;?
     Route: 042
     Dates: start: 20211214, end: 20211214

REACTIONS (2)
  - Gingival injury [None]
  - Impaired healing [None]

NARRATIVE: CASE EVENT DATE: 20220210
